FAERS Safety Report 4816224-5 (Version None)
Quarter: 2005Q4

REPORT INFORMATION
  Report Type: 
  Country: None (occurrence: None)
  Receive Date: 20051026
  Receipt Date: 20051019
  Transmission Date: 20060501
  Serious: Yes (Hospitalization)
  Sender: FDA-Public Use
  Company Number: GRP05000262

PATIENT
  Sex: Female

DRUGS (1)
  1. ACTONEL [Suspect]
     Indication: OSTEOPOROSIS
     Dosage: 1 TABLET, 1 /DAY, ORAL
     Route: 048
     Dates: start: 20050320, end: 20050825

REACTIONS (2)
  - BLOOD CALCIUM INCREASED [None]
  - CONDITION AGGRAVATED [None]
